FAERS Safety Report 5910675-3 (Version None)
Quarter: 2008Q4

REPORT INFORMATION
  Report Type: 
  Country: None (occurrence: None)
  Receive Date: 20081007
  Receipt Date: 20080926
  Transmission Date: 20090506
  Serious: Yes (Hospitalization)
  Sender: FDA-Public Use
  Company Number: BR-ROCHE-588836

PATIENT
  Age: 12 Month

DRUGS (1)
  1. ROCEPHIN [Suspect]
     Indication: BRONCHIOLITIS
     Dosage: DILUTED IN POTASSIUM CHLORIDE.
     Route: 065
     Dates: start: 20070101, end: 20070101

REACTIONS (4)
  - APALLIC SYNDROME [None]
  - BLOOD POTASSIUM INCREASED [None]
  - CARDIAC ARREST [None]
  - NERVOUS SYSTEM DISORDER [None]
